FAERS Safety Report 5358425-6 (Version None)
Quarter: 2007Q2

REPORT INFORMATION
  Report Type: 
  Country: None (occurrence: None)
  Receive Date: 20070531
  Receipt Date: 20070307
  Transmission Date: 20071010
  Serious: No
  Sender: FDA-Public Use
  Company Number: 2007MP000120

PATIENT
  Age: 77 Year
  Sex: Male
  Weight: 104.3273 kg

DRUGS (3)
  1. DACOGEN [Suspect]
     Indication: MYELODYSPLASTIC SYNDROME
     Dosage: 40 MG;QD;IV
     Route: 042
     Dates: start: 20061201
  2. DIFLUCAN [Concomitant]
  3. ALBUTEROL [Concomitant]

REACTIONS (2)
  - OFF LABEL USE [None]
  - VISION BLURRED [None]
